FAERS Safety Report 12094259 (Version 5)
Quarter: 2016Q2

REPORT INFORMATION
  Report Type: Spontaneous
  Country: US (occurrence: US)
  Receive Date: 20160219
  Receipt Date: 20160408
  Transmission Date: 20160815
  Serious: Yes (Hospitalization, Other)
  Sender: FDA-Public Use
  Company Number: US-TEVA-636160USA

PATIENT
  Age: 89 Year
  Sex: Female

DRUGS (21)
  1. METOPROLOL TARTRATE. [Concomitant]
     Active Substance: METOPROLOL TARTRATE
  2. LINEZOLID. [Interacting]
     Active Substance: LINEZOLID
     Indication: ENTEROCOCCAL BACTERAEMIA
  3. BUDESONIDE. [Concomitant]
     Active Substance: BUDESONIDE
     Dosage: 2 INHALATIONS
  4. ATORVASTATIN [Concomitant]
     Active Substance: ATORVASTATIN
     Dosage: EVERY EVENING
  5. FUROSEMIDE. [Concomitant]
     Active Substance: FUROSEMIDE
     Route: 042
  6. HEPARIN [Concomitant]
     Active Substance: HEPARIN SODIUM
     Dosage: 5000 UNITS
     Route: 058
  7. FUROSEMIDE. [Concomitant]
     Active Substance: FUROSEMIDE
  8. ONDANSETRON [Concomitant]
     Active Substance: ONDANSETRON
  9. LIDOCAINE. [Concomitant]
     Active Substance: LIDOCAINE
  10. TIOTROPIUM [Concomitant]
     Active Substance: TIOTROPIUM
     Dosage: 1 INHALATION
  11. METOPROLOL. [Concomitant]
     Active Substance: METOPROLOL
  12. CARBIDOPA AND LEVODOPA [Suspect]
     Active Substance: CARBIDOPA\LEVODOPA
     Indication: PARKINSON^S DISEASE
     Dosage: 25-100 MG
  13. PARACETAMOL [Concomitant]
     Active Substance: ACETAMINOPHEN
  14. IPRATROPIUM [Concomitant]
     Active Substance: IPRATROPIUM
     Dosage: 1 INHALATION
  15. TRAMADOL. [Concomitant]
     Active Substance: TRAMADOL
  16. ACETYLSALICYLIC ACID [Concomitant]
     Active Substance: ASPIRIN
  17. CEFEPIME [Concomitant]
     Active Substance: CEFEPIME HYDROCHLORIDE
  18. PANTOPRAZOLE [Concomitant]
     Active Substance: PANTOPRAZOLE SODIUM
  19. SEVELAMER [Concomitant]
     Active Substance: SEVELAMER
  20. LISINOPRIL. [Concomitant]
     Active Substance: LISINOPRIL
  21. RIVAROXABAN [Concomitant]
     Active Substance: RIVAROXABAN
     Indication: ATRIAL FIBRILLATION

REACTIONS (2)
  - Serotonin syndrome [Recovered/Resolved]
  - Drug interaction [Recovered/Resolved]

NARRATIVE: CASE EVENT DATE: 201509
